FAERS Safety Report 21211869 (Version 4)
Quarter: 2022Q4

REPORT INFORMATION
  Report Type: Report from Study
  Country: US (occurrence: US)
  Receive Date: 20220815
  Receipt Date: 20221122
  Transmission Date: 20230112
  Serious: Yes (Other)
  Sender: FDA-Public Use
  Company Number: US-BRISTOL-MYERS SQUIBB COMPANY-2022-089195

PATIENT
  Age: 71 Year
  Sex: Female
  Weight: 68.04 kg

DRUGS (2)
  1. REVLIMID [Suspect]
     Active Substance: LENALIDOMIDE
     Indication: Plasma cell myeloma
     Dosage: EVERY MONDAY AND WEDNESDAY
     Route: 048
     Dates: start: 20170712
  2. REVLIMID [Suspect]
     Active Substance: LENALIDOMIDE
     Dosage: 1 CAPSULE EVERY MONDAY, WEDNESDAY, AND FRIDAY. TAKE FOR 2 WEEKS AT THE START OF EACH CHEMOTHERAPY CY
     Route: 048
     Dates: start: 202201

REACTIONS (5)
  - Pneumonia [Unknown]
  - Lower limb fracture [Unknown]
  - Thrombosis [Unknown]
  - Diarrhoea [Unknown]
  - Off label use [Unknown]

NARRATIVE: CASE EVENT DATE: 20170712
